FAERS Safety Report 12913235 (Version 2)
Quarter: 2019Q2

REPORT INFORMATION
  Report Type: Spontaneous
  Country: FR (occurrence: FR)
  Receive Date: 20161104
  Receipt Date: 20190610
  Transmission Date: 20190711
  Serious: Yes (Hospitalization)
  Sender: FDA-Public Use
  Company Number: FR-SA-2016SA198700

PATIENT
  Age: 42 Year
  Sex: Male

DRUGS (3)
  1. DALACINE [CLINDAMYCIN HYDROCHLORIDE] [Suspect]
     Active Substance: CLINDAMYCIN HYDROCHLORIDE
     Indication: ARTHRITIS
     Dosage: UNK UNK,QD
     Route: 048
     Dates: start: 20160924, end: 20161003
  2. TRAMADOL HYDROCHLORIDE. [Suspect]
     Active Substance: TRAMADOL HYDROCHLORIDE
     Indication: ARTHRITIS
     Dosage: UNK UNK,UNK
     Route: 048
     Dates: start: 20160924, end: 20161003
  3. LOVENOX [Suspect]
     Active Substance: ENOXAPARIN SODIUM
     Indication: ARTHRITIS
     Dosage: UNK UNK,UNK
     Route: 058
     Dates: start: 20160924, end: 20160930

REACTIONS (1)
  - Vascular purpura [Recovered/Resolved]

NARRATIVE: CASE EVENT DATE: 20161001
